FAERS Safety Report 7999374-4 (Version None)
Quarter: 2011Q4

REPORT INFORMATION
  Report Type: 
  Country: None (occurrence: None)
  Receive Date: 20111221
  Receipt Date: 20090708
  Transmission Date: 20120403
  Serious: Yes (Other)
  Sender: FDA-Public Use
  Company Number: PHHY2009AR070311

PATIENT
  Sex: Male

DRUGS (1)
  1. TEGRETOL [Suspect]
     Dosage: 200 MG, DAILY
     Dates: start: 20080101

REACTIONS (2)
  - CONVULSION [None]
  - HYPERSENSITIVITY [None]
